FAERS Safety Report 22258466 (Version 1)
Quarter: 2023Q2

REPORT INFORMATION
  Report Type: Other
  Country: JP (occurrence: None)
  Receive Date: 20230427
  Receipt Date: 20230427
  Transmission Date: 20230722
  Serious: Yes (Death, Other)
  Sender: FDA-Public Use
  Company Number: JP-ROCHE-3337178

PATIENT
  Age: 65 Year
  Sex: Male

DRUGS (4)
  1. RITUXIMAB [Suspect]
     Active Substance: RITUXIMAB
     Indication: Castleman^s disease
     Route: 041
  2. CYCLOSPORINE [Concomitant]
     Active Substance: CYCLOSPORINE
  3. PREDNISOLONE [Concomitant]
     Active Substance: PREDNISOLONE
  4. TOCILIZUMAB [Concomitant]
     Active Substance: TOCILIZUMAB
     Route: 065

REACTIONS (4)
  - Systemic candida [Fatal]
  - Septic shock [Unknown]
  - Pneumonia [Unknown]
  - Off label use [Unknown]
